FAERS Safety Report 7707451-8 (Version None)
Quarter: 2011Q3

REPORT INFORMATION
  Report Type: 
  Country: None (occurrence: None)
  Receive Date: 20110824
  Receipt Date: 20110817
  Transmission Date: 20111222
  Serious: Yes (Hospitalization, Other)
  Sender: FDA-Public Use
  Company Number: US-ABBOTT-11P-163-0847843-00

PATIENT
  Age: 70 Year
  Sex: Female

DRUGS (16)
  1. GABAPENTIN [Concomitant]
     Indication: NEURALGIA
  2. LASIX [Concomitant]
     Indication: FLUID RETENTION
  3. FOLIC ACID [Concomitant]
     Indication: PRODUCT USED FOR UNKNOWN INDICATION
  4. VIT B COMPLEX [Concomitant]
     Indication: PRODUCT USED FOR UNKNOWN INDICATION
  5. POTASSIUM [Concomitant]
     Indication: PRODUCT USED FOR UNKNOWN INDICATION
  6. SPIRONOLACTONE [Concomitant]
     Indication: HYPERTENSION
  7. ORPHENADRINE CITRATE [Concomitant]
     Indication: PAIN
  8. TRAMADOL HCL [Concomitant]
     Indication: PAIN
  9. HUMIRA [Suspect]
     Indication: RHEUMATOID ARTHRITIS
     Dates: start: 20060101
  10. HUMIRA [Suspect]
  11. METHOTREXATE [Concomitant]
     Indication: PRODUCT USED FOR UNKNOWN INDICATION
  12. GABAPENTIN [Concomitant]
  13. ASPIRIN [Concomitant]
     Indication: PRODUCT USED FOR UNKNOWN INDICATION
  14. CARVEDILOL [Concomitant]
     Indication: HYPERTENSION
  15. TYLENOL W/ CODEINE NO. 3 [Concomitant]
     Indication: PAIN
  16. CALCIUM + VITAMIN D [Concomitant]
     Indication: PRODUCT USED FOR UNKNOWN INDICATION

REACTIONS (11)
  - DRUG DOSE OMISSION [None]
  - FATIGUE [None]
  - OESOPHAGEAL STENOSIS [None]
  - ASTHENIA [None]
  - VAGINAL CYST [None]
  - TONGUE DISCOLOURATION [None]
  - MALAISE [None]
  - OROPHARYNGEAL PAIN [None]
  - GOUT [None]
  - DEVICE MALFUNCTION [None]
  - NODULE [None]
